FAERS Safety Report 5914663-2 (Version None)
Quarter: 2008Q4

REPORT INFORMATION
  Report Type: 
  Country: None (occurrence: None)
  Receive Date: 20081008
  Receipt Date: 20080922
  Transmission Date: 20090506
  Serious: Yes (Death, Hospitalization)
  Sender: FDA-Public Use
  Company Number: 8037348

PATIENT
  Age: 42 Year
  Sex: Male

DRUGS (2)
  1. KEPPRA [Suspect]
     Indication: CONVULSION
     Dosage: PO
     Route: 048
  2. KEPPRA [Suspect]
     Indication: CONVULSION
     Dosage: 2500 MG 1/D IV
     Route: 042
     Dates: start: 20080901

REACTIONS (3)
  - REFUSAL OF TREATMENT BY RELATIVE [None]
  - TERMINAL STATE [None]
  - UNRESPONSIVE TO STIMULI [None]
